FAERS Safety Report 7837025-X (Version None)
Quarter: 2011Q4

REPORT INFORMATION
  Report Type: 
  Country: None (occurrence: None)
  Receive Date: 20111024
  Receipt Date: 20110817
  Transmission Date: 20120403
  Serious: No
  Sender: FDA-Public Use
  Company Number: US-ABBOTT-11P-163-0848306-00

PATIENT
  Sex: Female
  Weight: 99.88 kg

DRUGS (2)
  1. LUPRON DEPOT [Suspect]
     Indication: MENSTRUATION IRREGULAR
     Dosage: UNKNOWN
     Dates: start: 20110801
  2. LORAZEPAM [Concomitant]
     Indication: STRESS

REACTIONS (3)
  - DIZZINESS [None]
  - PRURITUS [None]
  - MYALGIA [None]
